FAERS Safety Report 6795634-3 (Version None)
Quarter: 2010Q2

REPORT INFORMATION
  Report Type: 
  Country: None (occurrence: None)
  Receive Date: 20100625
  Receipt Date: 20100618
  Transmission Date: 20101027
  Serious: Yes (Other)
  Sender: FDA-Public Use
  Company Number: JP-MERCK-1006USA03551

PATIENT
  Age: 71 Year
  Sex: Male

DRUGS (5)
  1. SINGULAIR [Suspect]
     Indication: ASTHMA
     Route: 048
     Dates: start: 20100226, end: 20100617
  2. AMLODIPINE [Suspect]
     Route: 048
     Dates: start: 20090501, end: 20100617
  3. ASPIRIN [Suspect]
     Route: 048
     Dates: start: 20090501, end: 20100617
  4. LOSARTAN POTASSIUM AND HYDROCHLOROTHIAZIDE [Suspect]
     Route: 048
     Dates: start: 20090617, end: 20100617
  5. URINORM [Suspect]
     Route: 048
     Dates: start: 20090101, end: 20100617

REACTIONS (4)
  - HAEMOGLOBIN DECREASED [None]
  - MYELODYSPLASTIC SYNDROME [None]
  - PLATELET COUNT DECREASED [None]
  - WHITE BLOOD CELL COUNT DECREASED [None]
